FAERS Safety Report 17990841 (Version 1)
Quarter: 2020Q3

REPORT INFORMATION
  Report Type: Spontaneous
  Country: US (occurrence: US)
  Receive Date: 20200707
  Receipt Date: 20200707
  Transmission Date: 20201103
  Serious: No
  Sender: FDA-Public Use
  Company Number: US-JNJFOC-20200638987

PATIENT
  Age: 34 Year
  Sex: Female
  Weight: 64.92 kg

DRUGS (2)
  1. TOPAMAX [Suspect]
     Active Substance: TOPIRAMATE
     Route: 048
  2. TOPAMAX [Suspect]
     Active Substance: TOPIRAMATE
     Indication: HEADACHE
     Route: 048

REACTIONS (5)
  - Off label use [Unknown]
  - Dizziness [Unknown]
  - Ear discomfort [Unknown]
  - Product use in unapproved indication [Unknown]
  - Dysarthria [Unknown]

NARRATIVE: CASE EVENT DATE: 20200626
